FAERS Safety Report 4534651-0 (Version None)
Quarter: 2004Q4

REPORT INFORMATION
  Report Type: 
  Country: None (occurrence: None)
  Receive Date: 20041214
  Receipt Date: 20041018
  Transmission Date: 20050328
  Serious: No
  Sender: FDA-Public Use
  Company Number: 2004240246US

PATIENT
  Sex: Female

DRUGS (3)
  1. BEXTRA [Suspect]
  2. COUMADIN [Concomitant]
  3. OXYGEN (OXYGEN) [Concomitant]

REACTIONS (3)
  - RASH PAPULAR [None]
  - RASH PRURITIC [None]
  - SKIN ULCER [None]
